FAERS Safety Report 13363307 (Version 2)
Quarter: 2017Q2

REPORT INFORMATION
  Report Type: Spontaneous
  Country: US (occurrence: US)
  Receive Date: 20170323
  Receipt Date: 20170411
  Transmission Date: 20170830
  Serious: No
  Sender: FDA-Public Use
  Company Number: US-BAYER-2017-055577

PATIENT
  Age: 45 Year
  Sex: Male

DRUGS (3)
  1. GADAVIST [Suspect]
     Active Substance: GADOBUTROL
     Indication: SCAN
  2. GADAVIST [Suspect]
     Active Substance: GADOBUTROL
     Indication: NECK PAIN
     Dosage: 7 ML, ONCE
     Dates: start: 20170310, end: 20170310
  3. GADAVIST [Suspect]
     Active Substance: GADOBUTROL
     Indication: RADICULOPATHY

REACTIONS (2)
  - Arthralgia [Recovering/Resolving]
  - Pain in extremity [None]

NARRATIVE: CASE EVENT DATE: 201703
